FAERS Safety Report 11334820 (Version 1)
Quarter: 2015Q3

REPORT INFORMATION
  Report Type: Spontaneous
  Country: US (occurrence: None)
  Receive Date: 20150731
  Receipt Date: 20150731
  Transmission Date: 20151125
  Serious: Yes (Other)
  Sender: FDA-Public Use
  Company Number: AMAG201500779

PATIENT
  Age: 41 Year
  Sex: Female

DRUGS (2)
  1. PRENATAL VITAMINS (ASCORBIC ACID, BIOTIN, MINERALS NO, NICOTINIC ACID, RETINOL, TOCOPHEROL, VITAMIN B NOS VITAMIN D NOS) [Concomitant]
  2. MAKENA [Suspect]
     Active Substance: HYDROXYPROGESTERONE CAPROATE
     Indication: PREMATURE DELIVERY
     Route: 030
     Dates: start: 20150630

REACTIONS (2)
  - Placenta praevia haemorrhage [None]
  - Maternal exposure during pregnancy [None]
